FAERS Safety Report 18732442 (Version 1)
Quarter: 2021Q1

REPORT INFORMATION
  Report Type: Spontaneous
  Country: CA (occurrence: CA)
  Receive Date: 20210113
  Receipt Date: 20210113
  Transmission Date: 20210419
  Serious: Yes (Hospitalization)
  Sender: FDA-Public Use
  Company Number: CA-AUROBINDO-AUR-APL-2021-001292

PATIENT
  Age: 45 Year
  Sex: Male

DRUGS (1)
  1. VALACICLOVIR [Suspect]
     Active Substance: VALACYCLOVIR HYDROCHLORIDE
     Indication: HERPES ZOSTER
     Dosage: 1000 GRAM, ONCE A DAY
     Route: 058

REACTIONS (8)
  - Dizziness [Recovered/Resolved]
  - Product prescribing error [Recovered/Resolved]
  - Extra dose administered [Recovered/Resolved]
  - Toxicity to various agents [Recovered/Resolved]
  - Tremor [Recovered/Resolved]
  - Confusional state [Recovered/Resolved]
  - Trismus [Recovered/Resolved]
  - Restlessness [Recovered/Resolved]
